FAERS Safety Report 19331112 (Version 1)
Quarter: 2021Q2

REPORT INFORMATION
  Report Type: Spontaneous
  Country: US (occurrence: US)
  Receive Date: 20210528
  Receipt Date: 20210528
  Transmission Date: 20210717
  Serious: No
  Sender: FDA-Public Use
  Company Number: US-SIGMAPHARM LABORATORIES, LLC-2021SIG00023

PATIENT
  Age: 76 Year
  Sex: Male
  Weight: 87.08 kg

DRUGS (16)
  1. ACITRETIN. [Suspect]
     Active Substance: ACITRETIN
     Dosage: 25 MG, 2X/DAY
     Route: 048
     Dates: start: 202011
  2. BABY ASPIRIN [Concomitant]
     Active Substance: ASPIRIN
     Dosage: UNK, EVERY 72 HOURS (EVERY 3 DAYS)
  3. ACITRETIN. [Suspect]
     Active Substance: ACITRETIN
     Dosage: 25 MG, 1X/DAY
     Route: 048
     Dates: end: 2021
  4. ISONIAZID. [Concomitant]
     Active Substance: ISONIAZID
     Dosage: UNK, 1X/DAY
     Dates: start: 20201129
  5. NEXIUM [Concomitant]
     Active Substance: ESOMEPRAZOLE MAGNESIUM
  6. MIRALAX [Concomitant]
     Active Substance: POLYETHYLENE GLYCOL 3350
  7. FISH OIL [Concomitant]
     Active Substance: FISH OIL
  8. FLOMAX [Concomitant]
     Active Substance: TAMSULOSIN HYDROCHLORIDE
  9. FUROSEMIDE. [Concomitant]
     Active Substance: FUROSEMIDE
  10. UNSPECIFIED FLUID PILL (STARTS WITH A ^T^) [Concomitant]
     Dosage: 10 MG
  11. UNSPECIFIED FIBER MEDICINE [Concomitant]
  12. ALPRAZOLAM. [Concomitant]
     Active Substance: ALPRAZOLAM
  13. OCUVITE [Concomitant]
     Active Substance: VITAMINS
  14. ACITRETIN. [Suspect]
     Active Substance: ACITRETIN
     Indication: PSORIASIS
     Dosage: 25 MG, 1X/DAY
     Route: 048
     Dates: start: 202009, end: 202011
  15. ACITRETIN. [Suspect]
     Active Substance: ACITRETIN
     Dosage: 25 MG, EVERY 48 HOURS
     Route: 048
     Dates: start: 2021
  16. VITAMIN B6 [Concomitant]
     Active Substance: PYRIDOXINE HYDROCHLORIDE
     Dosage: 0.5 TABLETS, 1X/DAY

REACTIONS (14)
  - Asthenia [Not Recovered/Not Resolved]
  - Blister [Not Recovered/Not Resolved]
  - Skin discharge [Not Recovered/Not Resolved]
  - Nail disorder [Not Recovered/Not Resolved]
  - Somnolence [Not Recovered/Not Resolved]
  - Scab [Not Recovered/Not Resolved]
  - Blister rupture [Not Recovered/Not Resolved]
  - Spider vein [Not Recovered/Not Resolved]
  - Musculoskeletal stiffness [Not Recovered/Not Resolved]
  - Onychoclasis [Not Recovered/Not Resolved]
  - Skin lesion [Not Recovered/Not Resolved]
  - Hypoaesthesia [Not Recovered/Not Resolved]
  - Therapeutic product effect incomplete [Not Recovered/Not Resolved]
  - Skin exfoliation [Recovering/Resolving]

NARRATIVE: CASE EVENT DATE: 202009
